FAERS Safety Report 8430537-X (Version None)
Quarter: 2012Q2

REPORT INFORMATION
  Report Type: 
  Country: None (occurrence: None)
  Receive Date: 20120612
  Receipt Date: 20120605
  Transmission Date: 20120825
  Serious: Yes (Hospitalization)
  Sender: FDA-Public Use
  Company Number: CA-GLAXOSMITHKLINE-A0980312A

PATIENT
  Sex: Female

DRUGS (3)
  1. FLOLAN [Suspect]
     Indication: PULMONARY HYPERTENSION
     Dosage: 1.5MG CONTINUOUS
     Route: 042
     Dates: start: 20101115, end: 20120511
  2. VOLIBRIS [Suspect]
     Indication: PULMONARY HYPERTENSION
     Dosage: 10MG PER DAY
     Route: 048
     Dates: start: 20110425, end: 20120511
  3. FLOLAN [Suspect]
     Indication: PULMONARY HYPERTENSION
     Route: 042
     Dates: start: 20101115, end: 20120511

REACTIONS (1)
  - LUNG TRANSPLANT [None]
